FAERS Safety Report 8304641 (Version 4)
Quarter: 2013Q2

REPORT INFORMATION
  Report Type: Report from Study
  Country: GB (occurrence: GB)
  Receive Date: 20111221
  Receipt Date: 20130503
  Transmission Date: 20140414
  Serious: No
  Sender: FDA-Public Use
  Company Number: GB-JNJFOC-20111204901

PATIENT
  Age: 16 Year
  Sex: Female
  Weight: 52.5 kg

DRUGS (2)
  1. REMICADE [Suspect]
     Indication: CROHN^S DISEASE
     Route: 042
     Dates: start: 20081208, end: 20090807
  2. HUMIRA [Concomitant]
     Dates: start: 20091002

REACTIONS (1)
  - Clostridium difficile infection [Recovered/Resolved]
